FAERS Safety Report 8732237 (Version 2)
Quarter: 2012Q4

REPORT INFORMATION
  Report Type: 
  Country: AU (occurrence: AU)
  Receive Date: 20120820
  Receipt Date: 20120922
  Transmission Date: 20130627
  Serious: Yes (Death)
  Sender: FDA-Public Use
  Company Number: AU-B.I. PHARMACEUTICALS,INC./RIDGEFIELD-2012-AU-01455AU

PATIENT
  Sex: Female
  Weight: 58 kg

DRUGS (3)
  1. PRADAXA [Suspect]
     Indication: CEREBROVASCULAR ACCIDENT PROPHYLAXIS
     Dates: start: 20120727
  2. PRADAXA [Suspect]
     Indication: ATRIAL FIBRILLATION
  3. LANOXIN [Concomitant]
     Dosage: 0.25 mg

REACTIONS (1)
  - Pneumonia [Fatal]
